FAERS Safety Report 11004087 (Version 1)
Quarter: 2015Q2

REPORT INFORMATION
  Report Type: Spontaneous
  Country: US (occurrence: None)
  Receive Date: 20150408
  Receipt Date: 20150408
  Transmission Date: 20150821
  Serious: No
  Sender: FDA-Public Use
  Company Number: None

PATIENT
  Age: 54 Year
  Sex: Female
  Weight: 97.52 kg

DRUGS (10)
  1. METFORMIN [Suspect]
     Active Substance: METFORMIN HYDROCHLORIDE
     Indication: PRODUCT ODOUR ABNORMAL
     Dosage: 2 PILL AM, 1 PILL PM
     Route: 048
  2. LUTEIN [Concomitant]
     Active Substance: LUTEIN
  3. MULTIVITAMIN [Concomitant]
     Active Substance: VITAMINS
  4. ASPIRIN. [Concomitant]
     Active Substance: ASPIRIN
  5. FIBER [Concomitant]
     Active Substance: PSYLLIUM HUSK
  6. PRAVASTATIN [Concomitant]
     Active Substance: PRAVASTATIN\PRAVASTATIN SODIUM
  7. ALLEGRA [Concomitant]
     Active Substance: FEXOFENADINE HYDROCHLORIDE
  8. VITAMIN E [Concomitant]
     Active Substance: .ALPHA.-TOCOPHEROL
  9. CLONOZEPAM [Concomitant]
  10. CALCIUM [Concomitant]
     Active Substance: CALCIUM

REACTIONS (4)
  - Glycosylated haemoglobin increased [None]
  - Blood glucose increased [None]
  - Product quality issue [None]
  - Drug ineffective [None]

NARRATIVE: CASE EVENT DATE: 20150403
